FAERS Safety Report 8321723 (Version 4)
Quarter: 2012Q4

REPORT INFORMATION
  Report Type: 
  Country: IT (occurrence: IT)
  Receive Date: 20120104
  Receipt Date: 20120926
  Transmission Date: 20130627
  Serious: Yes (Death, Other)
  Sender: FDA-Public Use
  Company Number: IT-CELGENEUS-083-21880-11123122

PATIENT
  Age: 64 Year
  Sex: Male

DRUGS (3)
  1. REVLIMID [Suspect]
     Indication: MYELOMA RECURRENCE
     Dosage: 25 Milligram
     Route: 048
     Dates: start: 20110401, end: 201104
  2. REVLIMID [Suspect]
     Dosage: 25 Milligram
     Route: 048
     Dates: start: 201105, end: 20110520
  3. SOLDESAM [Concomitant]
     Indication: MULTIPLE MYELOMA
     Dosage: 5.7143 Milligram
     Route: 048
     Dates: start: 20101202, end: 20110712

REACTIONS (2)
  - Death [Fatal]
  - Pancytopenia [Not Recovered/Not Resolved]
